FAERS Safety Report 17625857 (Version 2)
Quarter: 2020Q2

REPORT INFORMATION
  Report Type: Spontaneous
  Country: US (occurrence: US)
  Receive Date: 20200404
  Receipt Date: 20200409
  Transmission Date: 20200713
  Serious: Yes (Other)
  Sender: FDA-Public Use
  Company Number: US-TEVA-2020-US-1216895

PATIENT
  Sex: Female

DRUGS (4)
  1. OCTREOTIDE ACETATE. [Suspect]
     Active Substance: OCTREOTIDE ACETATE
     Indication: METASTATIC CARCINOID TUMOUR
     Dosage: 2 ML DAILY; STRENGTH: 200 MCG / ML
     Route: 065
     Dates: start: 20200316
  2. METFORMIN [Concomitant]
     Active Substance: METFORMIN HYDROCHLORIDE
     Indication: DIABETES MELLITUS
     Route: 065
  3. OCTREOTIDE ACETATE. [Suspect]
     Active Substance: OCTREOTIDE ACETATE
     Dosage: QUARTERING THE DOSE
     Route: 065
  4. JANUVIA [Concomitant]
     Active Substance: SITAGLIPTIN PHOSPHATE
     Indication: DIABETES MELLITUS

REACTIONS (12)
  - Hypothyroidism [Unknown]
  - Somnolence [Unknown]
  - Blood glucose fluctuation [Unknown]
  - Dizziness [Unknown]
  - Abnormal faeces [Unknown]
  - Chest discomfort [Unknown]
  - Nausea [Unknown]
  - Arthralgia [Unknown]
  - Influenza like illness [Unknown]
  - Chest pain [Unknown]
  - Malaise [Unknown]
  - Drug ineffective [Unknown]

NARRATIVE: CASE EVENT DATE: 202003
